FAERS Safety Report 5259133-2 (Version None)
Quarter: 2007Q1

REPORT INFORMATION
  Report Type: 
  Country: None (occurrence: None)
  Receive Date: 20070308
  Receipt Date: 20070301
  Transmission Date: 20070707
  Serious: Yes (Life-Threatening)
  Sender: FDA-Public Use
  Company Number: JP-GILEAD-2007-0011151

PATIENT
  Age: 35 Year
  Sex: Female

DRUGS (7)
  1. AMBISOME [Suspect]
     Indication: CRYPTOCOCCOSIS
     Route: 041
     Dates: start: 20060928, end: 20061002
  2. AMBISOME [Suspect]
     Route: 041
     Dates: start: 20060921, end: 20060928
  3. TRUVADA [Suspect]
     Indication: HIV INFECTION
     Route: 048
     Dates: start: 20060221
  4. ANCOTIL [Suspect]
     Route: 048
     Dates: start: 20060921, end: 20061002
  5. STOCRIN [Suspect]
     Route: 048
     Dates: start: 20060221
  6. BAKTAR [Concomitant]
     Indication: PROPHYLAXIS
     Route: 048
     Dates: start: 20051127
  7. ZITHROMAC [Concomitant]
     Indication: PROPHYLAXIS
     Route: 048
     Dates: start: 20060101

REACTIONS (1)
  - BRAIN HERNIATION [None]
